FAERS Safety Report 4307058-9 (Version None)
Quarter: 2004Q1

REPORT INFORMATION
  Report Type: 
  Country: None (occurrence: None)
  Receive Date: 20040225
  Receipt Date: 20040213
  Transmission Date: 20041129
  Serious: Yes (Disabling)
  Sender: FDA-Public Use
  Company Number: 204728

PATIENT
  Age: 78 Year
  Sex: Male

DRUGS (5)
  1. RITUXAN [Suspect]
     Indication: DIFFUSE LARGE B-CELL LYMPHOMA
     Dosage: 50 MG, UNK, INTRAVENOUS
     Route: 042
     Dates: start: 20040129
  2. CYCLOPHOSPHAMIDE [Concomitant]
  3. DOXORUBICIN HCL [Concomitant]
  4. VINCRISTINE [Concomitant]
  5. PREDNISONE [Concomitant]

REACTIONS (1)
  - PLEURISY [None]
